FAERS Safety Report 13017663 (Version 1)
Quarter: 2016Q4

REPORT INFORMATION
  Report Type: Other
  Country: CA (occurrence: CA)
  Receive Date: 20161212
  Receipt Date: 20161212
  Transmission Date: 20170207
  Serious: Yes (Other)
  Sender: FDA-Public Use
  Company Number: CA-APOTEX-2016AP015378

PATIENT

DRUGS (2)
  1. APO-BACLOFEN [Suspect]
     Active Substance: BACLOFEN
     Indication: MUSCLE SPASTICITY
     Dosage: 820 ?G, QD
     Route: 037
  2. APO-FENTANYL MATRIX [Suspect]
     Active Substance: FENTANYL
     Indication: PRODUCT USED FOR UNKNOWN INDICATION
     Dosage: 1230 ?G, QD
     Route: 037

REACTIONS (5)
  - Pain [Recovered/Resolved]
  - Tremor [Recovered/Resolved]
  - Muscle spasticity [Recovered/Resolved]
  - Pruritus [Recovered/Resolved]
  - Drug withdrawal syndrome [Recovered/Resolved]
